FAERS Safety Report 9201753 (Version 3)
Quarter: 2013Q3

REPORT INFORMATION
  Report Type: Spontaneous
  Country: BR (occurrence: BR)
  Receive Date: 20130401
  Receipt Date: 20130722
  Transmission Date: 20140515
  Serious: Yes (Other)
  Sender: FDA-Public Use
  Company Number: BR-ROCHE-1096511

PATIENT
  Age: 64 Year
  Sex: Female
  Weight: 60 kg

DRUGS (6)
  1. AVASTIN [Suspect]
     Indication: COLORECTAL CANCER
     Route: 042
     Dates: start: 201203
  2. AVASTIN [Suspect]
     Indication: COLON NEOPLASM
     Route: 042
     Dates: start: 20120425, end: 20120919
  3. XELODA [Suspect]
     Indication: COLON NEOPLASM
     Route: 048
  4. FOLINIC ACID [Suspect]
     Indication: COLORECTAL CANCER
     Route: 065
  5. FLUOROURACIL [Suspect]
     Indication: COLORECTAL CANCER
     Route: 065
  6. IRINOTECAN [Suspect]
     Indication: COLORECTAL CANCER
     Route: 065

REACTIONS (6)
  - Thrombosis [Unknown]
  - Thrombophlebitis [Unknown]
  - Pulmonary mass [Not Recovered/Not Resolved]
  - Disease progression [Not Recovered/Not Resolved]
  - Oedema peripheral [Unknown]
  - Deep vein thrombosis [Recovered/Resolved]
